FAERS Safety Report 5569246-3 (Version None)
Quarter: 2007Q4

REPORT INFORMATION
  Report Type: 
  Country: None (occurrence: None)
  Receive Date: 20071220
  Receipt Date: 20070921
  Transmission Date: 20080405
  Serious: No
  Sender: FDA-Public Use
  Company Number: A0683556A

PATIENT
  Age: 69 Year
  Sex: Male

DRUGS (3)
  1. AVODART [Suspect]
     Dosage: .5MG PER DAY
     Route: 048
     Dates: start: 20070701
  2. LIPITOR [Concomitant]
  3. NORTRIPTYLINE HCL [Concomitant]

REACTIONS (1)
  - POLLAKIURIA [None]
